FAERS Safety Report 10656566 (Version 4)
Quarter: 2015Q3

REPORT INFORMATION
  Report Type: Spontaneous
  Country: US (occurrence: US)
  Receive Date: 20141216
  Receipt Date: 20150819
  Transmission Date: 20151125
  Serious: No
  Sender: FDA-Public Use
  Company Number: US-GILEAD-2014-0127294

PATIENT
  Age: 54 Year
  Sex: Male

DRUGS (6)
  1. LETAIRIS [Suspect]
     Active Substance: AMBRISENTAN
     Indication: PRODUCT USED FOR UNKNOWN INDICATION
     Dosage: 10 MG, QD
     Route: 065
     Dates: start: 20080401
  2. ORENITRAM [Concomitant]
     Active Substance: TREPROSTINIL
  3. COUMADIN [Concomitant]
     Active Substance: WARFARIN SODIUM
  4. REMODULIN [Concomitant]
     Active Substance: TREPROSTINIL
  5. SILDENAFIL. [Concomitant]
     Active Substance: SILDENAFIL
  6. REVATIO [Concomitant]
     Active Substance: SILDENAFIL CITRATE

REACTIONS (5)
  - Erythema [Unknown]
  - Infusion site erythema [Unknown]
  - Dyspnoea [Unknown]
  - Infusion site pain [Unknown]
  - Activities of daily living impaired [Unknown]

NARRATIVE: CASE EVENT DATE: 20141208
